FAERS Safety Report 23835589 (Version 5)
Quarter: 2024Q3

REPORT INFORMATION
  Report Type: Report from Study
  Country: US (occurrence: US)
  Receive Date: 20240509
  Receipt Date: 20240808
  Transmission Date: 20241016
  Serious: Yes (Other)
  Sender: JOHNSON AND JOHNSON
  Company Number: US-JNJFOC-20240444516

PATIENT
  Age: 88 Year
  Sex: Male

DRUGS (7)
  1. APALUTAMIDE [Suspect]
     Active Substance: APALUTAMIDE
     Indication: Prostate cancer
     Route: 048
  2. APALUTAMIDE [Suspect]
     Active Substance: APALUTAMIDE
     Route: 048
     Dates: start: 20240202
  3. APALUTAMIDE [Suspect]
     Active Substance: APALUTAMIDE
     Route: 048
  4. TAURINE [Concomitant]
     Active Substance: TAURINE
     Route: 065
  5. ONDANSETRON [Concomitant]
     Active Substance: ONDANSETRON
     Route: 065
  6. RAMIPRIL [Concomitant]
     Active Substance: RAMIPRIL
     Indication: Hypertension
  7. NATTOKINASE [Concomitant]
     Active Substance: NATTOKINASE
     Indication: Thrombosis

REACTIONS (8)
  - Depressed level of consciousness [Unknown]
  - Nausea [Not Recovered/Not Resolved]
  - Nocturia [Unknown]
  - Toothache [Unknown]
  - Ear discomfort [Unknown]
  - Incorrect dose administered [Unknown]
  - Rash pruritic [Unknown]
  - Dysuria [Unknown]

NARRATIVE: CASE EVENT DATE: 20240413
